FAERS Safety Report 14718235 (Version 1)
Quarter: 2018Q2

REPORT INFORMATION
  Report Type: Spontaneous
  Country: US (occurrence: US)
  Receive Date: 20180404
  Receipt Date: 20180404
  Transmission Date: 20180711
  Serious: No
  Sender: FDA-Public Use
  Company Number: US-SA-2018SA070316

PATIENT
  Age: 62 Year
  Sex: Female

DRUGS (5)
  1. HYDROXYUREA. [Concomitant]
     Active Substance: HYDROXYUREA
     Route: 065
  2. DUPIXENT [Suspect]
     Active Substance: DUPILUMAB
     Indication: SKIN DISORDER
     Route: 058
     Dates: start: 20170920
  3. CHANTIX [Concomitant]
     Active Substance: VARENICLINE TARTRATE
  4. CLOBETASOL [Concomitant]
     Active Substance: CLOBETASOL
  5. MOMETASONE [Concomitant]
     Active Substance: MOMETASONE

REACTIONS (1)
  - Eye irritation [Not Recovered/Not Resolved]
